FAERS Safety Report 5767055-3 (Version None)
Quarter: 2008Q2

REPORT INFORMATION
  Report Type: 
  Country: None (occurrence: None)
  Receive Date: 20080612
  Receipt Date: 20080611
  Transmission Date: 20081010
  Serious: Yes (Other)
  Sender: FDA-Public Use
  Company Number: A0732382A

PATIENT

DRUGS (3)
  1. ALLI [Suspect]
     Dates: start: 20071201
  2. CENTRUM SILVER [Concomitant]
  3. CALTRATE + D [Concomitant]

REACTIONS (3)
  - ANAEMIA [None]
  - OSTEOPENIA [None]
  - VITAMIN D DEFICIENCY [None]
